FAERS Safety Report 20430448 (Version 1)
Quarter: 2022Q1

REPORT INFORMATION
  Report Type: Report from Study
  Country: FR (occurrence: FR)
  Receive Date: 20220204
  Receipt Date: 20220204
  Transmission Date: 20220424
  Serious: Yes (Other)
  Sender: FDA-Public Use
  Company Number: FR-SERVIER-S20009032

PATIENT

DRUGS (7)
  1. PEGASPARGASE [Suspect]
     Active Substance: PEGASPARGASE
     Indication: Acute lymphocytic leukaemia
     Dosage: 1750 IU (D12, D26).
     Route: 042
     Dates: start: 20200615
  2. TN UNSEPCIFIED [Concomitant]
     Indication: Acute lymphocytic leukaemia
     Dosage: 40 MG (D8 TO D28),
     Route: 048
     Dates: start: 20200610
  3. TN UNSEPCIFIED [Concomitant]
     Indication: Acute lymphocytic leukaemia
     Dosage: 1 MG (D8, D15, D22, D29)
     Route: 042
     Dates: start: 20200610
  4. TN UNSEPCIFIED [Concomitant]
     Indication: Acute lymphocytic leukaemia
     Dosage: 20 MG (D8, D15, D22, D29)
     Route: 042
     Dates: start: 20200610
  5. TN UNSEPCIFIED [Concomitant]
     Indication: Acute lymphocytic leukaemia
     Dosage: 12 MG (D13, D24),
     Route: 037
     Dates: start: 20200615
  6. TN UNSEPCIFIED [Concomitant]
     Indication: Acute lymphocytic leukaemia
     Dosage: 25 MG (D13, D24)
     Route: 037
     Dates: start: 20200615
  7. TN UNSEPCIFIED [Concomitant]
     Indication: Acute lymphocytic leukaemia
     Dosage: 15 MG (D13, D24)
     Route: 037
     Dates: start: 20200615

REACTIONS (1)
  - Gamma-glutamyltransferase increased [Recovering/Resolving]

NARRATIVE: CASE EVENT DATE: 20200713
